FAERS Safety Report 5604613-0 (Version None)
Quarter: 2008Q1

REPORT INFORMATION
  Report Type: 
  Country: None (occurrence: None)
  Receive Date: 20080123
  Receipt Date: 20080114
  Transmission Date: 20080703
  Serious: Yes (Other)
  Sender: FDA-Public Use
  Company Number: 2008001346

PATIENT
  Age: 37 Year
  Sex: Female
  Weight: 81.6475 kg

DRUGS (2)
  1. LUBRIDERM ADVANCED THERAPY CREAMY LOTION (NO ACTIVE INGREDIENT) [Suspect]
     Dosage: ONCE, TOPICAL
     Route: 061
     Dates: start: 20080113, end: 20080114
  2. SYNTHROID [Concomitant]

REACTIONS (4)
  - ERYTHEMA [None]
  - EYE DISORDER [None]
  - EYE SWELLING [None]
  - FEELING HOT [None]
